FAERS Safety Report 4990359-9 (Version None)
Quarter: 2006Q2

REPORT INFORMATION
  Report Type: 
  Country: None (occurrence: None)
  Receive Date: 20060502
  Receipt Date: 20060502
  Transmission Date: 20061013
  Serious: No
  Sender: FDA-Public Use
  Company Number: None

PATIENT
  Age: 89 Year
  Sex: Female
  Weight: 66.6788 kg

DRUGS (2)
  1. BSS [Suspect]
     Indication: CATARACT OPERATION
     Dosage: TOPICAL IRRIGATION
     Route: 061
     Dates: start: 20060405, end: 20060405
  2. LENS SN60WF [Suspect]
     Indication: LENS IMPLANT
     Dosage: IMPLANT
     Dates: start: 20060405, end: 20060405

REACTIONS (2)
  - CATARACT OPERATION COMPLICATION [None]
  - ENDOPHTHALMITIS [None]
